FAERS Safety Report 11602007 (Version 2)
Quarter: 2015Q4

REPORT INFORMATION
  Report Type: Spontaneous
  Country: US (occurrence: US)
  Receive Date: 20151006
  Receipt Date: 20151008
  Transmission Date: 20160304
  Serious: No
  Sender: FDA-Public Use
  Company Number: US-AMGEN-USASP2015048415

PATIENT
  Age: 64 Year
  Sex: Female
  Weight: 77.7 kg

DRUGS (1)
  1. PROLIA [Suspect]
     Active Substance: DENOSUMAB
     Indication: OSTEOPOROSIS POSTMENOPAUSAL
     Dosage: UNK
     Route: 065

REACTIONS (4)
  - Headache [Recovering/Resolving]
  - Tongue biting [Recovering/Resolving]
  - Swollen tongue [Recovering/Resolving]
  - Chest pain [Recovering/Resolving]
